FAERS Safety Report 25217342 (Version 3)
Quarter: 2025Q4

REPORT INFORMATION
  Report Type: Spontaneous
  Country: EU (occurrence: EU)
  Receive Date: 20250420
  Receipt Date: 20251002
  Transmission Date: 20260118
  Serious: Yes (Hospitalization, Other)
  Sender: AUROBINDO
  Company Number: EU-GSK-FR2025EME006238

PATIENT
  Age: 46 Year
  Sex: Female
  Weight: 59 kg

DRUGS (21)
  1. ALPRAZOLAM [Suspect]
     Active Substance: ALPRAZOLAM
     Indication: Product used for unknown indication
     Dosage: 1 DOSAGE FORM, ONCE A DAY (1 DF, QD)
     Route: 065
  2. KETOPROFEN [Suspect]
     Active Substance: KETOPROFEN
     Indication: Product used for unknown indication
     Dosage: UNK (UNK,1/D 5D)
     Route: 065
  3. RASAGILINE [Suspect]
     Active Substance: RASAGILINE
     Indication: Parkinson^s disease
     Dosage: UNK (UNK UNK, QD,1 MORNING)
     Route: 065
  4. RASAGILINE [Suspect]
     Active Substance: RASAGILINE
     Dosage: 1 MILLIGRAM, ONCE A DAY
     Route: 065
  5. ROPINIROLE [Suspect]
     Active Substance: ROPINIROLE
     Indication: Parkinson^s disease
     Dosage: UNK (UNK UNK, QD,1 MORNING)
     Route: 065
  6. ROPINIROLE [Suspect]
     Active Substance: ROPINIROLE
     Dosage: UNK (UNK,MORNING 7D)
     Route: 065
  7. ROPINIROLE [Suspect]
     Active Substance: ROPINIROLE
     Dosage: 8 MILLIGRAM, ONCE A DAY (8 MG, QD)
     Route: 065
  8. ZOPICLONE [Suspect]
     Active Substance: ZOPICLONE
     Indication: Product used for unknown indication
     Dosage: 1 DOSAGE FORM, ONCE A DAY (1 DF, QD)
     Route: 065
  9. AZILECT [Suspect]
     Active Substance: RASAGILINE MESYLATE
     Indication: Parkinson^s disease
     Dosage: UNK
     Route: 065
     Dates: start: 20191022, end: 202504
  10. AZILECT [Suspect]
     Active Substance: RASAGILINE MESYLATE
     Indication: Behaviour disorder
  11. REQUIP [Suspect]
     Active Substance: ROPINIROLE HYDROCHLORIDE
     Indication: Parkinson^s disease
     Dosage: UNK (UNK, QD, 1 MORNING )
     Route: 065
  12. REQUIP [Suspect]
     Active Substance: ROPINIROLE HYDROCHLORIDE
     Dosage: 18 MILLIGRAM
     Route: 065
  13. REQUIP [Suspect]
     Active Substance: ROPINIROLE HYDROCHLORIDE
     Dosage: 4 MILLIGRAM
     Route: 065
  14. REQUIP [Suspect]
     Active Substance: ROPINIROLE HYDROCHLORIDE
     Dosage: 2 MILLIGRAM, ONCE A DAY
     Route: 065
     Dates: start: 20200210
  15. REQUIP [Suspect]
     Active Substance: ROPINIROLE HYDROCHLORIDE
     Dosage: 8 MILLIGRAM
     Route: 065
     Dates: start: 20200911, end: 202311
  16. LAMICTAL [Suspect]
     Active Substance: LAMOTRIGINE
     Indication: Product used for unknown indication
     Dosage: 25 MILLIGRAM
     Route: 065
  17. SINEMET [Suspect]
     Active Substance: CARBIDOPA\LEVODOPA
     Indication: Tremor
     Dosage: UNK (UNK,1?2 TABLET MORNING, NOON AND EVENING)
     Route: 065
  18. SINEMET [Suspect]
     Active Substance: CARBIDOPA\LEVODOPA
     Dosage: UNK (UNK,1.5 TAB MORNING, 1 TAB MIDDAY AND 1 TAB IN THE EVENING)
     Route: 065
  19. SINEMET [Suspect]
     Active Substance: CARBIDOPA\LEVODOPA
     Dosage: UNK (UNK UNK, TID CURRENTLY (T TAB 3 TIMES)
     Route: 065
  20. SINEMET [Suspect]
     Active Substance: CARBIDOPA\LEVODOPA
     Dosage: UNK (UNK,4.5/D THAT IS TO SAY 1.5 TAB 3 TIMES)
     Route: 065
  21. PRAMIPEXOLE [Suspect]
     Active Substance: PRAMIPEXOLE
     Indication: Product used for unknown indication
     Dosage: 1.05 MILLIGRAM (1.05 MG)
     Route: 065

REACTIONS (40)
  - Depression [Recovered/Resolved]
  - Akinesia [Unknown]
  - Suicidal ideation [Recovered/Resolved]
  - Dependence [Recovered/Resolved]
  - Injury [Unknown]
  - Pain in extremity [Unknown]
  - Pruritus [Unknown]
  - Alopecia [Unknown]
  - Hyposmia [Unknown]
  - Mental disorder [Unknown]
  - Fatigue [Unknown]
  - Restless legs syndrome [Unknown]
  - Back pain [Unknown]
  - Paraesthesia [Unknown]
  - Lordosis [Unknown]
  - Osteoarthritis [Unknown]
  - Urinary incontinence [Unknown]
  - Disturbance in attention [Unknown]
  - Orthostatic intolerance [Unknown]
  - Memory impairment [Unknown]
  - Lack of spontaneous speech [Unknown]
  - Poor quality sleep [Unknown]
  - Gastrointestinal hypermotility [Unknown]
  - Attention deficit hyperactivity disorder [Unknown]
  - Fine motor skill dysfunction [Unknown]
  - Depressed mood [Unknown]
  - Depressive symptom [Unknown]
  - Eating disorder [Unknown]
  - Behaviour disorder [Recovered/Resolved]
  - Insomnia [Recovered/Resolved]
  - Tremor [Recovered/Resolved]
  - Libido increased [Recovered/Resolved]
  - Adverse drug reaction [Recovered/Resolved]
  - Gambling disorder [Recovered/Resolved]
  - Hypersexuality [Recovered/Resolved]
  - Mixed anxiety and depressive disorder [Recovered/Resolved]
  - Weight increased [Recovered/Resolved]
  - Impulse-control disorder [Recovered/Resolved]
  - Obsessive-compulsive disorder [Recovered/Resolved]
  - Pain [Recovered/Resolved]
